FAERS Safety Report 21983546 (Version 1)
Quarter: 2023Q1

REPORT INFORMATION
  Report Type: Spontaneous
  Country: US (occurrence: US)
  Receive Date: 20230213
  Receipt Date: 20230213
  Transmission Date: 20230417
  Serious: Yes (Hospitalization, Other)
  Sender: FDA-Public Use
  Company Number: US-GLENMARK PHARMACEUTICALS-2022GMK073451

PATIENT

DRUGS (2)
  1. ZONISAMIDE [Suspect]
     Active Substance: ZONISAMIDE
     Indication: Seizure
     Dosage: 400 MILLIGRAM (1 CAPSULE IN THE MORNING, 1 CAPSULE, IN THE AFTERNOON AND 2 CAPSULE AT NIGHT)
     Route: 048
  2. ZONISAMIDE [Suspect]
     Active Substance: ZONISAMIDE
     Dosage: 400 MILLIGRAM (1 CAPSULE IN THE MORNING, 1 CAPSULE, IN THE AFTERNOON AND 2 CAPSULE AT NIGHT)
     Route: 048
     Dates: end: 20220629

REACTIONS (2)
  - Major depression [Not Recovered/Not Resolved]
  - Recalled product administered [Unknown]
